FAERS Safety Report 4413197-4 (Version None)
Quarter: 2004Q3

REPORT INFORMATION
  Report Type: 
  Country: None (occurrence: None)
  Receive Date: 20040802
  Receipt Date: 20040802
  Transmission Date: 20050211
  Serious: Yes (Hospitalization)
  Sender: FDA-Public Use
  Company Number: None

PATIENT
  Age: 85 Year
  Sex: Male

DRUGS (7)
  1. VIOXX [Suspect]
     Indication: BACK PAIN
     Dosage: 25 MG DAILY ORAL
     Route: 048
  2. ASPIRIN [Suspect]
     Indication: CARDIAC DISORDER
     Dosage: ORAL
     Route: 048
  3. ASPIRIN [Suspect]
     Indication: PROPHYLAXIS
     Dosage: ORAL
     Route: 048
  4. LISINOPRIL [Concomitant]
  5. LASIX [Concomitant]
  6. FLOMAX [Concomitant]
  7. TOPROL-XL [Concomitant]

REACTIONS (5)
  - BACK PAIN [None]
  - GASTRIC ULCER [None]
  - HAEMOGLOBIN DECREASED [None]
  - MEDICATION ERROR [None]
  - MELAENA [None]
